FAERS Safety Report 8213163-7 (Version None)
Quarter: 2012Q1

REPORT INFORMATION
  Report Type: 
  Country: None (occurrence: None)
  Receive Date: 20120315
  Receipt Date: 20120301
  Transmission Date: 20120608
  Serious: Yes (Hospitalization, Other)
  Sender: FDA-Public Use
  Company Number: AU-CELGENEUS-008-50794-12012443

PATIENT

DRUGS (3)
  1. NEUPOGEN [Concomitant]
     Indication: PROPHYLAXIS
     Route: 065
  2. CIPROFLOXACIN [Concomitant]
     Indication: PROPHYLAXIS
     Route: 065
  3. VIDAZA [Suspect]
     Route: 050
     Dates: start: 20101001

REACTIONS (1)
  - ORGANISING PNEUMONIA [None]
